FAERS Safety Report 11755882 (Version 1)
Quarter: 2015Q4

REPORT INFORMATION
  Report Type: Spontaneous
  Country: US (occurrence: US)
  Receive Date: 20151119
  Receipt Date: 20151119
  Transmission Date: 20160304
  Serious: No
  Sender: FDA-Public Use
  Company Number: US-ALLERGAN-1501064US

PATIENT
  Age: 64 Year
  Sex: Female

DRUGS (2)
  1. WESTHROID [Concomitant]
     Active Substance: THYROGLOBULIN
     Indication: HYPOTHYROIDISM
     Dosage: UNK
  2. ALPHAGAN P [Suspect]
     Active Substance: BRIMONIDINE TARTRATE
     Indication: INTRAOCULAR PRESSURE INCREASED
     Dosage: UNK
     Route: 047
     Dates: start: 2014, end: 20150115

REACTIONS (5)
  - Palpitations [Unknown]
  - Fatigue [Unknown]
  - Dyspnoea [Unknown]
  - Head discomfort [Unknown]
  - Intraocular pressure increased [Unknown]

NARRATIVE: CASE EVENT DATE: 20150115
